FAERS Safety Report 14128578 (Version 2)
Quarter: 2017Q4

REPORT INFORMATION
  Report Type: Spontaneous
  Country: IT (occurrence: IT)
  Receive Date: 20171026
  Receipt Date: 20171030
  Transmission Date: 20180321
  Serious: Yes (Other)
  Sender: FDA-Public Use
  Company Number: IT-TEVA-818388ACC

PATIENT
  Age: 23 Year
  Sex: Male

DRUGS (3)
  1. LAMOTRIGINE. [Interacting]
     Active Substance: LAMOTRIGINE
     Indication: EPILEPSY
     Dosage: 500 MG TOTAL
     Dates: start: 20170918, end: 20170918
  2. SYNFLEX - RECORDATI INDUSTRIA CHIMICA E FARMACEUTICA S.P.A. [Interacting]
     Active Substance: NAPROXEN SODIUM
     Indication: PRODUCT USED FOR UNKNOWN INDICATION
     Dosage: 9 DF TOTAL
     Route: 048
     Dates: start: 20170918, end: 20170918
  3. AMOXICILLIN. [Suspect]
     Active Substance: AMOXICILLIN
     Indication: INFECTION
     Dosage: 9 G TOTAL
     Dates: start: 20170918, end: 20170918

REACTIONS (5)
  - Hyperreflexia [Unknown]
  - Intentional self-injury [Unknown]
  - Overdose [Unknown]
  - Alcohol abuse [Unknown]
  - Alcohol interaction [Unknown]

NARRATIVE: CASE EVENT DATE: 20170918
